FAERS Safety Report 5568951-2 (Version None)
Quarter: 2007Q4

REPORT INFORMATION
  Report Type: 
  Country: None (occurrence: None)
  Receive Date: 20071220
  Receipt Date: 20070405
  Transmission Date: 20080405
  Serious: No
  Sender: FDA-Public Use
  Company Number: A0646076A

PATIENT
  Age: 62 Year
  Sex: Female

DRUGS (10)
  1. AVODART [Suspect]
     Dosage: 1CAP PER DAY
     Route: 048
  2. PAMELOR [Concomitant]
  3. LOPRESSOR [Concomitant]
  4. MEVACOR [Concomitant]
  5. ALLEGRA [Concomitant]
  6. ZETIA [Concomitant]
  7. BIOTIN [Concomitant]
  8. ZINC PICOLINATE [Concomitant]
  9. ALDACTONE [Concomitant]
  10. KLONOPIN [Concomitant]

REACTIONS (2)
  - BREAST ENLARGEMENT [None]
  - DRUG ADMINISTRATION ERROR [None]
